FAERS Safety Report 11157444 (Version 1)
Quarter: 2015Q2

REPORT INFORMATION
  Report Type: Spontaneous
  Country: FR (occurrence: FR)
  Receive Date: 20150603
  Receipt Date: 20150603
  Transmission Date: 20150821
  Serious: Yes (Other)
  Sender: FDA-Public Use
  Company Number: FR-CIPLA LTD.-2015FR04162

PATIENT

DRUGS (2)
  1. CISPLATIN. [Suspect]
     Active Substance: CISPLATIN
     Indication: PENILE SQUAMOUS CELL CARCINOMA
     Dosage: 50 MG/M2 ON DAY 1 OVER 1 HOUR PRECEDED
  2. GEMCITABINE [Suspect]
     Active Substance: GEMCITABINE\GEMCITABINE HYDROCHLORIDE
     Indication: PENILE SQUAMOUS CELL CARCINOMA
     Dosage: 1,250 MG/M2 ON DAY 1 OVER 30 MINUTES

REACTIONS (1)
  - Adverse event [Unknown]
